FAERS Safety Report 12890357 (Version 1)
Quarter: 2016Q4

REPORT INFORMATION
  Report Type: Spontaneous
  Country: CA (occurrence: CA)
  Receive Date: 20161027
  Receipt Date: 20161027
  Transmission Date: 20170207
  Serious: Yes (Other)
  Sender: FDA-Public Use
  Company Number: CA-ACTELION-A-US2016-144673

PATIENT
  Age: 78 Year
  Sex: Female

DRUGS (10)
  1. ASA [Concomitant]
     Active Substance: ASPIRIN
  2. FUROSEMIDE. [Concomitant]
     Active Substance: FUROSEMIDE
  3. OMNARIS [Concomitant]
     Active Substance: CICLESONIDE
     Dosage: SPRAY, METERED DOSE
  4. TRACLEER [Suspect]
     Active Substance: BOSENTAN
     Indication: PULMONARY HYPERTENSION
     Dosage: 125 MG, BID
     Route: 048
  5. ULORIC [Concomitant]
     Active Substance: FEBUXOSTAT
  6. PANTOPRAZOLE [Concomitant]
     Active Substance: PANTOPRAZOLE SODIUM
  7. SYNTHROID [Concomitant]
     Active Substance: LEVOTHYROXINE SODIUM
  8. ADCIRCA [Concomitant]
     Active Substance: TADALAFIL
  9. ADVIL [Concomitant]
     Active Substance: IBUPROFEN
  10. PREDNISONE. [Concomitant]
     Active Substance: PREDNISONE

REACTIONS (1)
  - Memory impairment [Recovered/Resolved]
